FAERS Safety Report 13695713 (Version 2)
Quarter: 2017Q3

REPORT INFORMATION
  Report Type: Spontaneous
  Country: JP (occurrence: JP)
  Receive Date: 20170627
  Receipt Date: 20170704
  Transmission Date: 20171127
  Serious: Yes (Hospitalization)
  Sender: FDA-Public Use
  Company Number: JP-AMGEN-JPNSP2017096949

PATIENT
  Age: 83 Year
  Sex: Female

DRUGS (2)
  1. PRALIA [Suspect]
     Active Substance: DENOSUMAB
     Indication: OSTEOPOROSIS
     Dosage: 60 MG, UNK
     Route: 058
  2. DENOTAS [Concomitant]
     Active Substance: CALCIUM CARBONATE\CHOLECALCIFEROL\MAGNESIUM CARBONATE
     Dosage: UNK
     Route: 065

REACTIONS (2)
  - Postoperative wound infection [Not Recovered/Not Resolved]
  - Blood calcium decreased [Not Recovered/Not Resolved]
